FAERS Safety Report 8589073-2 (Version None)
Quarter: 2012Q2

REPORT INFORMATION
  Report Type: 
  Country: None (occurrence: None)
  Receive Date: 20120423
  Receipt Date: 20090709
  Transmission Date: 20120825
  Serious: Yes (Other)
  Sender: FDA-Public Use
  Company Number: PHEH2009US07058

PATIENT
  Age: 54 Year
  Sex: Female
  Weight: 47 kg

DRUGS (2)
  1. ZOMETA [Concomitant]
  2. FEMARA [Suspect]
     Dosage: 2.5 MG, QD, ORAL
     Route: 048
     Dates: start: 20080601

REACTIONS (1)
  - ARTHRITIS [None]
